FAERS Safety Report 7001590-5 (Version None)
Quarter: 2010Q3

REPORT INFORMATION
  Report Type: 
  Country: None (occurrence: None)
  Receive Date: 20100920
  Receipt Date: 20100910
  Transmission Date: 20110219
  Serious: Yes (Other)
  Sender: FDA-Public Use
  Company Number: US-SANOFI-AVENTIS-2010SA055126

PATIENT
  Sex: Male

DRUGS (3)
  1. LANTUS [Suspect]
     Dosage: DOSE:40 UNIT(S)
     Route: 058
     Dates: start: 20050101, end: 20090101
  2. LANTUS [Suspect]
     Dosage: DOSE:70 UNIT(S)
     Route: 058
     Dates: start: 20090101
  3. OPTICLICK [Suspect]
     Dates: start: 20050101

REACTIONS (3)
  - BLOOD GLUCOSE INCREASED [None]
  - GLAUCOMA [None]
  - VISUAL IMPAIRMENT [None]
